FAERS Safety Report 6198635-1 (Version None)
Quarter: 2009Q2

REPORT INFORMATION
  Report Type: 
  Country: None (occurrence: None)
  Receive Date: 20090521
  Receipt Date: 20090513
  Transmission Date: 20091009
  Serious: Yes (Hospitalization, Other)
  Sender: FDA-Public Use
  Company Number: US-BAXTER-2009BH007815

PATIENT
  Sex: Female
  Weight: 62 kg

DRUGS (2)
  1. DIANEAL [Suspect]
     Indication: PERITONEAL DIALYSIS
     Route: 033
  2. DIANEAL [Suspect]
     Indication: PERITONEAL DIALYSIS
     Route: 033

REACTIONS (4)
  - ORTHOSTATIC HYPOTENSION [None]
  - PERITONEAL DIALYSIS COMPLICATION [None]
  - PERITONITIS BACTERIAL [None]
  - STAPHYLOCOCCAL INFECTION [None]
